FAERS Safety Report 19082310 (Version 1)
Quarter: 2021Q1

REPORT INFORMATION
  Report Type: Spontaneous
  Country: US (occurrence: US)
  Receive Date: 20210331
  Receipt Date: 20210331
  Transmission Date: 20210420
  Serious: Yes (Other)
  Sender: FDA-Public Use
  Company Number: None

PATIENT
  Age: 56 Year
  Sex: Female
  Weight: 72.03 kg

DRUGS (29)
  1. EFFEXOR [Concomitant]
     Active Substance: VENLAFAXINE HYDROCHLORIDE
  2. DULERA [Concomitant]
     Active Substance: FORMOTEROL FUMARATE DIHYDRATE\MOMETASONE FUROATE
  3. IBUPROFEN. [Concomitant]
     Active Substance: IBUPROFEN
  4. MUCINEX [Concomitant]
     Active Substance: GUAIFENESIN
  5. OXYGEN. [Concomitant]
     Active Substance: OXYGEN
  6. BACTROBAN [Concomitant]
     Active Substance: MUPIROCIN\MUPIROCIN CALCIUM
  7. DUONEB [Concomitant]
     Active Substance: ALBUTEROL SULFATE\IPRATROPIUM BROMIDE
  8. MUCOMYST [Concomitant]
     Active Substance: ACETYLCYSTEINE
  9. METAMUCIL [Concomitant]
     Active Substance: PLANTAGO SEED
  10. NORVASC [Concomitant]
     Active Substance: AMLODIPINE BESYLATE
  11. DIOVAN [Concomitant]
     Active Substance: VALSARTAN
  12. CARAFATE [Concomitant]
     Active Substance: SUCRALFATE
  13. PROAIR HFA [Concomitant]
     Active Substance: ALBUTEROL SULFATE
  14. PERCOCET [Concomitant]
     Active Substance: ACETAMINOPHEN\OXYCODONE HYDROCHLORIDE
  15. GABAPENTIN. [Concomitant]
     Active Substance: GABAPENTIN
  16. TUMS [Concomitant]
     Active Substance: CALCIUM CARBONATE
  17. PEMBROLIZUMAB 200MG IV [Suspect]
     Active Substance: PEMBROLIZUMAB
     Indication: BASAL CELL CARCINOMA
     Dosage: ?          OTHER FREQUENCY:Q 3 WEEKS ;?
     Route: 042
     Dates: start: 20210217
  18. ZOFRAN [Concomitant]
     Active Substance: ONDANSETRON HYDROCHLORIDE
  19. SPIRIVA [Concomitant]
     Active Substance: TIOTROPIUM BROMIDE MONOHYDRATE
  20. TRAZODONE [Concomitant]
     Active Substance: TRAZODONE HYDROCHLORIDE
  21. SINGULAIR [Concomitant]
     Active Substance: MONTELUKAST SODIUM
  22. FLONASE [Concomitant]
     Active Substance: FLUTICASONE PROPIONATE
  23. MOVANTIK [Concomitant]
     Active Substance: NALOXEGOL OXALATE
  24. MIRALAX [Concomitant]
     Active Substance: POLYETHYLENE GLYCOL 3350
  25. PFIZER?BIONTECH COVID?19 VACCINE [Concomitant]
     Active Substance: TOZINAMERAN
  26. PRILOSEC [Concomitant]
     Active Substance: OMEPRAZOLE MAGNESIUM
  27. LIPITOR [Concomitant]
     Active Substance: ATORVASTATIN CALCIUM
  28. PEPCID [Concomitant]
     Active Substance: FAMOTIDINE
  29. ATROVENT [Concomitant]
     Active Substance: IPRATROPIUM BROMIDE

REACTIONS (1)
  - Adrenal insufficiency [None]

NARRATIVE: CASE EVENT DATE: 20210330
